FAERS Safety Report 10979335 (Version 3)
Quarter: 2015Q3

REPORT INFORMATION
  Report Type: Spontaneous
  Country: DE (occurrence: DE)
  Receive Date: 20150402
  Receipt Date: 20150716
  Transmission Date: 20151125
  Serious: Yes (Disabling, Other)
  Sender: FDA-Public Use
  Company Number: DE-PFIZER INC-2015112034

PATIENT
  Age: 2 Year
  Sex: Female

DRUGS (9)
  1. PHENYTOIN. [Suspect]
     Active Substance: PHENYTOIN
     Dosage: 150 MG, DAILY
  2. NITRAZEPAM [Suspect]
     Active Substance: NITRAZEPAM
     Indication: SEIZURE
  3. PHENYTOIN. [Suspect]
     Active Substance: PHENYTOIN
     Indication: CLONIC CONVULSION
     Dosage: 125 MG, DAILY
  4. CARBAMAZEPINE. [Suspect]
     Active Substance: CARBAMAZEPINE
     Indication: SEIZURE
  5. PRIMIDONE. [Suspect]
     Active Substance: PRIMIDONE
     Indication: CLONIC CONVULSION
  6. PHENYTOIN. [Suspect]
     Active Substance: PHENYTOIN
     Dosage: 250 MG, DAILY
  7. VALPROIC ACID. [Suspect]
     Active Substance: VALPROIC ACID
     Indication: SEIZURE
  8. ACTH [Suspect]
     Active Substance: CORTICOTROPIN
  9. ETHOSUXIMIDE. [Concomitant]
     Active Substance: ETHOSUXIMIDE
     Indication: CLONIC CONVULSION

REACTIONS (7)
  - Ataxia [Unknown]
  - Abasia [Unknown]
  - Cerebellar atrophy [Unknown]
  - Motor dysfunction [Recovering/Resolving]
  - Anticonvulsant drug level above therapeutic [Unknown]
  - Toxicity to various agents [Unknown]
  - Drug ineffective [Not Recovered/Not Resolved]

NARRATIVE: CASE EVENT DATE: 1971
